FAERS Safety Report 6626168-4 (Version None)
Quarter: 2010Q1

REPORT INFORMATION
  Report Type: 
  Country: None (occurrence: None)
  Receive Date: 20100310
  Receipt Date: 20100301
  Transmission Date: 20100710
  Serious: Yes (Other)
  Sender: FDA-Public Use
  Company Number: PHHY2009CA18863

PATIENT
  Sex: Male

DRUGS (4)
  1. SANDOSTATIN [Suspect]
     Indication: NEUROENDOCRINE TUMOUR
     Dosage: 100 UG, TID
     Route: 058
  2. SANDOSTATIN LAR [Suspect]
     Indication: NEUROENDOCRINE TUMOUR
     Dosage: 20 MG EVERY 4 WEEKS
     Route: 030
     Dates: start: 20090520
  3. GLYBURIDE [Concomitant]
  4. LASIX [Concomitant]

REACTIONS (9)
  - ASTHENIA [None]
  - BLOOD GLUCOSE INCREASED [None]
  - BLOOD PRESSURE INCREASED [None]
  - DIZZINESS [None]
  - DYSPNOEA [None]
  - FATIGUE [None]
  - OEDEMA PERIPHERAL [None]
  - SYNCOPE [None]
  - WEIGHT DECREASED [None]
